FAERS Safety Report 15048005 (Version 1)
Quarter: 2018Q2

REPORT INFORMATION
  Report Type: Spontaneous
  Country: US (occurrence: US)
  Receive Date: 20180622
  Receipt Date: 20180622
  Transmission Date: 20180711
  Serious: No
  Sender: FDA-Public Use
  Company Number: US-ASTRAZENECA-2018SE70271

PATIENT
  Age: 7225 Day
  Sex: Female
  Weight: 81.6 kg

DRUGS (1)
  1. SYMBICORT [Suspect]
     Active Substance: BUDESONIDE\FORMOTEROL FUMARATE DIHYDRATE
     Indication: ASTHMA
     Dosage: 2 TO 3 PUFFS TWICE A DAY OR AS NEEDED
     Route: 055
     Dates: start: 201406

REACTIONS (4)
  - Dyspnoea exertional [Not Recovered/Not Resolved]
  - Sleep disorder [Unknown]
  - Drug dose omission [Not Recovered/Not Resolved]
  - Intentional product misuse [Not Recovered/Not Resolved]

NARRATIVE: CASE EVENT DATE: 20180519
